FAERS Safety Report 10204286 (Version 1)
Quarter: 2014Q2

REPORT INFORMATION
  Report Type: Spontaneous
  Country: IT (occurrence: IT)
  Receive Date: 20140529
  Receipt Date: 20140529
  Transmission Date: 20141212
  Serious: Yes (Hospitalization)
  Sender: FDA-Public Use
  Company Number: PHHY2014IT062670

PATIENT
  Age: 79 Year
  Sex: Female

DRUGS (1)
  1. METFORMINE HCL [Suspect]
     Indication: DIABETES MELLITUS
     Dosage: 2 G, QD
     Route: 048

REACTIONS (3)
  - Renal failure acute [Recovered/Resolved with Sequelae]
  - Anuria [Recovered/Resolved with Sequelae]
  - Lactic acidosis [Recovered/Resolved with Sequelae]
